FAERS Safety Report 17127759 (Version 1)
Quarter: 2019Q4

REPORT INFORMATION
  Report Type: Spontaneous
  Country: US (occurrence: US)
  Receive Date: 20191114
  Receipt Date: 20191114
  Transmission Date: 20200122
  Serious: Yes (Life-Threatening)
  Sender: FDA-Public Use
  Company Number: None

PATIENT
  Age: 68 Year
  Sex: Male
  Weight: 0 kg

DRUGS (1)
  1. ISOSORBIDE MONONITRATE. [Suspect]
     Active Substance: ISOSORBIDE MONONITRATE
     Indication: VASCULAR DEVICE USER
     Dates: start: 20180503, end: 20180525

REACTIONS (2)
  - Suicidal ideation [None]
  - Headache [None]

NARRATIVE: CASE EVENT DATE: 20180525
